FAERS Safety Report 21547173 (Version 1)
Quarter: 2022Q4

REPORT INFORMATION
  Report Type: Spontaneous
  Country: US (occurrence: None)
  Receive Date: 20221101
  Receipt Date: 20221101
  Transmission Date: 20230112
  Serious: Yes (Hospitalization)
  Sender: FDA-Public Use
  Company Number: None

PATIENT

DRUGS (2)
  1. PIPERACILLIN AND TAZOBACTAM [Suspect]
     Active Substance: PIPERACILLIN SODIUM\TAZOBACTAM SODIUM
  2. LINEZOLID [Suspect]
     Active Substance: LINEZOLID

REACTIONS (2)
  - Clostridium difficile infection [None]
  - Septic shock [None]

NARRATIVE: CASE EVENT DATE: 20210328
